FAERS Safety Report 9725418 (Version 1)
Quarter: 2013Q4

REPORT INFORMATION
  Report Type: Spontaneous
  Country: FR (occurrence: FR)
  Receive Date: 20131203
  Receipt Date: 20131203
  Transmission Date: 20140711
  Serious: Yes (Other)
  Sender: FDA-Public Use
  Company Number: FR-ASTRAZENECA-2013SE87614

PATIENT
  Age: 21934 Day
  Sex: Male

DRUGS (3)
  1. CRESTOR [Suspect]
     Indication: DYSLIPIDAEMIA
     Route: 048
     Dates: start: 20130619
  2. INEXIUM [Concomitant]
     Route: 048
  3. ZYLORIC [Concomitant]
     Indication: GOUT
     Route: 048

REACTIONS (1)
  - Tendon rupture [Recovering/Resolving]
